FAERS Safety Report 10188363 (Version 1)
Quarter: 2014Q2

REPORT INFORMATION
  Report Type: Spontaneous
  Country: US (occurrence: None)
  Receive Date: 20140520
  Receipt Date: 20140520
  Transmission Date: 20141212
  Serious: Yes (Hospitalization, Other)
  Sender: FDA-Public Use
  Company Number: AUR-APL-2014-05721

PATIENT
  Age: 43 Year
  Sex: Female

DRUGS (12)
  1. CEFTRIAXONE (CEFTRIAXONE) [Suspect]
     Indication: PRODUCT USED FOR UNKNOWN INDICATION
  2. NORVASC (AMLODIPINE BESILATE) [Suspect]
     Indication: PRODUCT USED FOR UNKNOWN INDICATION
     Route: 048
  3. KETOROLAC TROMETHAMINE [Suspect]
     Indication: PRODUCT USED FOR UNKNOWN INDICATION
  4. METHYLPREDNISOLONE (METHYLPREDNISOLONE) [Suspect]
  5. DOXYCYCLINE HYCLATE (DOXYCYCLINE HYCLATE) [Suspect]
     Indication: PRODUCT USED FOR UNKNOWN INDICATION
  6. VANCOCIN (VANCOMYCIN HYDROCHLORIDE) [Suspect]
     Indication: STAPHYLOCOCCAL INFECTION
     Dosage: IN SODIUM CHLORIDE
  7. HYDRODIURIL [Suspect]
     Indication: PRODUCT USED FOR UNKNOWN INDICATION
     Route: 048
  8. VICODIN (VICODIN) [Suspect]
     Indication: PAIN
     Route: 048
  9. PRINIVIL [Suspect]
     Indication: PRODUCT USED FOR UNKNOWN INDICATION
     Route: 048
  10. ZESTRIL [Suspect]
     Indication: PRODUCT USED FOR UNKNOWN INDICATION
     Route: 048
  11. DAPTOMYCIN (DAPTOMYCIN) [Suspect]
     Indication: PRODUCT USED FOR UNKNOWN INDICATION
  12. CEFTAROLINE [Suspect]
     Indication: PRODUCT USED FOR UNKNOWN INDICATION

REACTIONS (7)
  - Back pain [None]
  - Pyrexia [None]
  - Intervertebral discitis [None]
  - Osteomyelitis [None]
  - Spinal column stenosis [None]
  - Osteonecrosis [None]
  - Blood creatinine increased [None]
